FAERS Safety Report 21146035 (Version 2)
Quarter: 2022Q3

REPORT INFORMATION
  Report Type: Report from Study
  Country: US (occurrence: US)
  Receive Date: 20220729
  Receipt Date: 20220805
  Transmission Date: 20221026
  Serious: Yes (Hospitalization)
  Sender: FDA-Public Use
  Company Number: US-GILEAD-2022-0591548

PATIENT
  Age: 14 Year
  Sex: Male
  Weight: 32 kg

DRUGS (5)
  1. AMBRISENTAN [Suspect]
     Active Substance: AMBRISENTAN
     Indication: Pulmonary arterial hypertension
     Dosage: 10 MG, QD
     Route: 048
     Dates: start: 20211027
  2. VELETRI [Concomitant]
     Active Substance: EPOPROSTENOL
  3. ADCIRCA [Concomitant]
     Active Substance: TADALAFIL
  4. DIGOXIN [Concomitant]
     Active Substance: DIGOXIN
  5. FOLIC ACID [Concomitant]
     Active Substance: FOLIC ACID

REACTIONS (2)
  - Device breakage [Recovered/Resolved]
  - Off label use [Not Recovered/Not Resolved]

NARRATIVE: CASE EVENT DATE: 20211027
